FAERS Safety Report 4353983-2 (Version None)
Quarter: 2004Q2

REPORT INFORMATION
  Report Type: 
  Country: None (occurrence: None)
  Receive Date: 20040506
  Receipt Date: 20040309
  Transmission Date: 20050107
  Serious: No
  Sender: FDA-Public Use
  Company Number: US-GLAXOSMITHKLINE-A0501942A

PATIENT
  Sex: Male

DRUGS (3)
  1. AVANDAMET [Suspect]
     Dosage: 1000MG TWICE PER DAY
     Route: 048
  2. AMARYL [Concomitant]
  3. WATER PILL [Concomitant]

REACTIONS (1)
  - JOINT SWELLING [None]
